FAERS Safety Report 24039281 (Version 1)
Quarter: 2024Q3

REPORT INFORMATION
  Report Type: Report from Study
  Country: GB (occurrence: GB)
  Receive Date: 20240702
  Receipt Date: 20240702
  Transmission Date: 20241016
  Serious: Yes (Other)
  Sender: AMGEN
  Company Number: GB-002147023-NVSC2024GB133505

PATIENT
  Age: 43 Year
  Sex: Female

DRUGS (1)
  1. AIMOVIG [Suspect]
     Active Substance: ERENUMAB-AOOE
     Indication: Migraine
     Dosage: 140 MG, PRE FILLED PEN [1]
     Route: 065
     Dates: start: 202406

REACTIONS (6)
  - Seizure [Recovered/Resolved]
  - Balance disorder [Recovered/Resolved]
  - Headache [Recovered/Resolved]
  - Feeling abnormal [Recovering/Resolving]
  - Photophobia [Recovered/Resolved]
  - Inappropriate schedule of product administration [Unknown]
